FAERS Safety Report 23564246 (Version 2)
Quarter: 2024Q1

REPORT INFORMATION
  Report Type: Spontaneous
  Country: US (occurrence: US)
  Receive Date: 20240226
  Receipt Date: 20240316
  Transmission Date: 20240410
  Serious: Yes (Other)
  Sender: FDA-Public Use
  Company Number: US-TEVA-VS-3158767

PATIENT
  Age: 70 Year
  Sex: Female

DRUGS (10)
  1. ANASTROZOLE [Suspect]
     Active Substance: ANASTROZOLE
     Indication: Hormone receptor positive breast cancer
     Route: 065
  2. CYCLOPHOSPHAMIDE [Concomitant]
     Active Substance: CYCLOPHOSPHAMIDE
     Indication: Breast cancer stage II
     Route: 065
  3. CARBOPLATIN [Suspect]
     Active Substance: CARBOPLATIN
     Indication: Breast cancer stage II
     Route: 065
  4. DOXORUBICIN [Concomitant]
     Active Substance: DOXORUBICIN
     Indication: Breast cancer stage II
     Route: 065
  5. SACITUZUMAB GOVITECAN [Suspect]
     Active Substance: SACITUZUMAB GOVITECAN
     Indication: Breast cancer stage II
     Route: 065
  6. ATEZOLIZUMAB [Suspect]
     Active Substance: ATEZOLIZUMAB
     Indication: Breast cancer stage II
     Route: 065
  7. GEMCITABINE [Suspect]
     Active Substance: GEMCITABINE
     Indication: Breast cancer stage II
     Route: 065
  8. PACLITAXEL [Suspect]
     Active Substance: PACLITAXEL
     Indication: Breast cancer stage II
     Route: 065
  9. LAROTRECTINIB [Suspect]
     Active Substance: LAROTRECTINIB
     Indication: Breast cancer stage II
     Route: 065
  10. ERIBULIN [Suspect]
     Active Substance: ERIBULIN
     Indication: Breast cancer stage II
     Route: 065

REACTIONS (3)
  - Drug ineffective [Unknown]
  - Oedema [Unknown]
  - Anaemia [Unknown]
